FAERS Safety Report 9135500 (Version 2)
Quarter: 2013Q4

REPORT INFORMATION
  Report Type: Report from Study
  Country: NL (occurrence: NL)
  Receive Date: 20130304
  Receipt Date: 20131106
  Transmission Date: 20140711
  Serious: Yes (Hospitalization, Other)
  Sender: FDA-Public Use
  Company Number: PHHY2013NL020321

PATIENT
  Age: 58 Year
  Sex: Male

DRUGS (1)
  1. SOMATROPIN [Suspect]
     Dosage: 0.3 MG
     Route: 058
     Dates: start: 20100917

REACTIONS (1)
  - Adrenocortical insufficiency acute [Unknown]
